FAERS Safety Report 5126765-1 (Version None)
Quarter: 2006Q4

REPORT INFORMATION
  Report Type: 
  Country: None (occurrence: None)
  Receive Date: 20061011
  Receipt Date: 20061011
  Transmission Date: 20070319
  Serious: Yes (Disabling)
  Sender: FDA-Public Use
  Company Number: None

PATIENT
  Age: 76 Year
  Sex: Male
  Weight: 113.8529 kg

DRUGS (3)
  1. ANGIOMAX [Suspect]
     Indication: ANGIOGRAM CEREBRAL
     Dosage: .75MG/KG BOLUS  X1   IV;  THEN 1.75 MG/KG 1HR DURING PROCEDURE
     Route: 042
     Dates: start: 20060626
  2. ANGIOMAX [Suspect]
     Indication: PERCUTANEOUS CORONARY INTERVENTION
     Dosage: .75MG/KG BOLUS  X1   IV;  THEN 1.75 MG/KG 1HR DURING PROCEDURE
     Route: 042
     Dates: start: 20060626
  3. CYPHER STENT [Concomitant]

REACTIONS (1)
  - PAIN IN EXTREMITY [None]
